FAERS Safety Report 5120184-X (Version None)
Quarter: 2006Q3

REPORT INFORMATION
  Report Type: 
  Country: None (occurrence: None)
  Receive Date: 20060928
  Receipt Date: 20060915
  Transmission Date: 20061208
  Serious: Yes (Death, Hospitalization, Other)
  Sender: FDA-Public Use
  Company Number: 2006BI012337

PATIENT
  Age: 79 Year
  Sex: Female

DRUGS (4)
  1. ZEVALIN [Suspect]
     Indication: NON-HODGKIN'S LYMPHOMA
     Dosage: 1X; IV
     Route: 042
     Dates: start: 20060511, end: 20060511
  2. RITUXIMAB [Concomitant]
  3. MYELOSTIM [Concomitant]
  4. CORTISONE [Concomitant]

REACTIONS (10)
  - ANAEMIA [None]
  - ASCITES [None]
  - DISEASE PROGRESSION [None]
  - GENERAL PHYSICAL HEALTH DETERIORATION [None]
  - HAEMATOTOXICITY [None]
  - HEPATIC FAILURE [None]
  - LEUKOPENIA [None]
  - PLEURAL EFFUSION [None]
  - RENAL FAILURE [None]
  - THERAPY NON-RESPONDER [None]
